FAERS Safety Report 8333542-7 (Version None)
Quarter: 2012Q2

REPORT INFORMATION
  Report Type: 
  Country: None (occurrence: None)
  Receive Date: 20120503
  Receipt Date: 20120430
  Transmission Date: 20120825
  Serious: No
  Sender: FDA-Public Use
  Company Number: US-PFIZER INC-2012107928

PATIENT
  Sex: Male
  Weight: 74.83 kg

DRUGS (1)
  1. CHANTIX [Suspect]
     Dosage: UNK

REACTIONS (1)
  - ABNORMAL DREAMS [None]
